FAERS Safety Report 5772476-9 (Version None)
Quarter: 2008Q2

REPORT INFORMATION
  Report Type: 
  Country: None (occurrence: None)
  Receive Date: 20080613
  Receipt Date: 20080604
  Transmission Date: 20081010
  Serious: Yes (Hospitalization)
  Sender: FDA-Public Use
  Company Number: US-ELI_LILLY_AND_COMPANY-US200806001181

PATIENT
  Sex: Female
  Weight: 101.59 kg

DRUGS (12)
  1. BYETTA [Suspect]
     Indication: WEIGHT CONTROL
     Dosage: 5 UG, 2/D
     Route: 058
     Dates: start: 20061101, end: 20061201
  2. BYETTA [Suspect]
     Dosage: 10 UG, 2/D
     Route: 058
     Dates: start: 20061201, end: 20070101
  3. BYETTA [Suspect]
     Dosage: 5 UG, 2/D
     Route: 058
     Dates: start: 20070101, end: 20070101
  4. BYETTA [Suspect]
     Dosage: 10 UG, 2/D
     Route: 058
     Dates: start: 20070101, end: 20080601
  5. ALLOPURINOL [Concomitant]
     Indication: GOUT
     Dosage: 300 MG, DAILY (1/D)
     Route: 048
  6. PAXIL [Concomitant]
     Indication: ANXIETY
     Dosage: 20 MG, DAILY (1/D)
     Route: 048
  7. ARMOUR THYROID [Concomitant]
     Indication: HYPOTHYROIDISM
     Dosage: 90 MG, DAILY (1/D)
  8. OTHER ANTIDIARRHOEALS [Concomitant]
     Indication: DIARRHOEA
     Dosage: UNK, DAILY (1/D)
     Route: 048
  9. CRESTOR [Concomitant]
     Indication: BLOOD CHOLESTEROL
     Dosage: 20 MG, DAILY (1/D)
     Route: 048
  10. TRIAMTERENE AND HYDROCHLOROTHIAZIDE [Concomitant]
     Indication: POLYURIA
     Dosage: UNK, DAILY (1/D)
     Route: 048
     Dates: start: 20070101
  11. NIASPAN [Concomitant]
     Indication: BLOOD TRIGLYCERIDES
     Dosage: 1000 MG, DAILY (1/D)
     Route: 048
     Dates: start: 20070101
  12. OTHER ANTIHYPERTENSIVES [Concomitant]
     Indication: HYPERTENSION
     Route: 048
     Dates: end: 20070101

REACTIONS (4)
  - ABDOMINAL HERNIA [None]
  - DECREASED APPETITE [None]
  - DIARRHOEA [None]
  - WEIGHT DECREASED [None]
